FAERS Safety Report 23779996 (Version 4)
Quarter: 2024Q2

REPORT INFORMATION
  Report Type: Spontaneous
  Country: US (occurrence: US)
  Receive Date: 20240424
  Receipt Date: 20240527
  Transmission Date: 20240716
  Serious: Yes (Hospitalization)
  Sender: FDA-Public Use
  Company Number: US-BRISTOL-MYERS SQUIBB COMPANY-2024-056632

PATIENT
  Age: 74 Year
  Sex: Male

DRUGS (2)
  1. LENALIDOMIDE [Suspect]
     Active Substance: LENALIDOMIDE
     Indication: Plasma cell myeloma
     Dosage: FREQUENCY: TAKE 1 CAPSULE BY MOUTH DAILY FOR 14 DAYS AND REST 7 DAYS FOR EVERY 21 DAYS
     Route: 048
  2. INLYTA [Suspect]
     Active Substance: AXITINIB
     Indication: Product used for unknown indication

REACTIONS (10)
  - Asthenia [Not Recovered/Not Resolved]
  - Dysphonia [Not Recovered/Not Resolved]
  - Feeding disorder [Not Recovered/Not Resolved]
  - Fatigue [Recovered/Resolved]
  - Agitation [Unknown]
  - Dyspnoea [Unknown]
  - Chest pain [Unknown]
  - Oral discomfort [Unknown]
  - Oropharyngeal discomfort [Unknown]
  - Off label use [Unknown]
